FAERS Safety Report 10146824 (Version 1)
Quarter: 2014Q2

REPORT INFORMATION
  Report Type: Spontaneous
  Country: US (occurrence: None)
  Receive Date: 20140430
  Receipt Date: 20140430
  Transmission Date: 20141212
  Serious: Yes (Hospitalization)
  Sender: FDA-Public Use
  Company Number: None

PATIENT
  Age: 73 Year
  Sex: Female

DRUGS (11)
  1. LEUPROLIDE [Suspect]
     Indication: BREAST CANCER
     Route: 048
     Dates: end: 20140203
  2. ASPIRIN [Concomitant]
  3. ATORVASTATIN [Concomitant]
  4. METOPROLOL SUCCINATE [Concomitant]
  5. MULTIVITAMIN [Concomitant]
  6. METOCLOPRAMIDE [Concomitant]
  7. TRAMADOL [Concomitant]
  8. VITAMIN D [Concomitant]
  9. HYDROCODONE [Concomitant]
  10. ACETAMINOPHEN [Concomitant]
  11. PANTOPRAZOLE [Concomitant]

REACTIONS (2)
  - Procedural complication [None]
  - Acute myocardial infarction [None]
